FAERS Safety Report 7383125-0 (Version None)
Quarter: 2011Q1

REPORT INFORMATION
  Report Type: 
  Country: None (occurrence: None)
  Receive Date: 20110330
  Receipt Date: 20110104
  Transmission Date: 20110831
  Serious: Yes (Hospitalization, Other)
  Sender: FDA-Public Use
  Company Number: US-BAYER-200942919NA

PATIENT
  Sex: Female
  Weight: 81.818 kg

DRUGS (2)
  1. YAZ [Suspect]
     Indication: PRODUCT USED FOR UNKNOWN INDICATION
     Route: 048
  2. YASMIN [Suspect]
     Indication: PRODUCT USED FOR UNKNOWN INDICATION
     Route: 048
     Dates: start: 20081229, end: 20090703

REACTIONS (12)
  - PAIN IN EXTREMITY [None]
  - EMBOLIC STROKE [None]
  - CEREBRAL THROMBOSIS [None]
  - MUSCULAR WEAKNESS [None]
  - BRAIN OEDEMA [None]
  - CLONUS [None]
  - HEMIPLEGIA [None]
  - CEREBROVASCULAR ACCIDENT [None]
  - HYPOAESTHESIA [None]
  - HEADACHE [None]
  - PARAESTHESIA [None]
  - APHASIA [None]
